FAERS Safety Report 4717202-7 (Version None)
Quarter: 2005Q3

REPORT INFORMATION
  Report Type: 
  Country: None (occurrence: None)
  Receive Date: 20050712
  Receipt Date: 20050411
  Transmission Date: 20060218
  Serious: Yes (Hospitalization)
  Sender: FDA-Public Use
  Company Number: 2005058545

PATIENT
  Age: 79 Year
  Sex: Female

DRUGS (6)
  1. ACCUPRIL [Suspect]
     Indication: HYPERTENSION
     Dosage: 80 MG (40 MG, 2 IN 1 D), ORAL
     Route: 048
  2. METOPROLOL [Concomitant]
  3. GLIPIZIDE [Concomitant]
  4. CLONIDINE [Concomitant]
  5. LORAZEPAM [Concomitant]
  6. CYANOCOBALAMIN [Concomitant]

REACTIONS (2)
  - FALL [None]
  - HEART RATE DECREASED [None]
